FAERS Safety Report 7295107-8 (Version None)
Quarter: 2011Q1

REPORT INFORMATION
  Report Type: 
  Country: None (occurrence: None)
  Receive Date: 20110211
  Receipt Date: 20110211
  Transmission Date: 20110831
  Serious: Yes (Hospitalization)
  Sender: FDA-Public Use
  Company Number: None

PATIENT
  Age: 74 Year
  Sex: Female
  Weight: 62 kg

DRUGS (1)
  1. SIMVASTATIN [Suspect]
     Indication: MYOCARDIAL INFARCTION
     Dosage: 40MG DAILY PO
     Route: 048
     Dates: start: 20110110, end: 20110131

REACTIONS (1)
  - RHABDOMYOLYSIS [None]
